FAERS Safety Report 5268144-2 (Version None)
Quarter: 2007Q1

REPORT INFORMATION
  Report Type: 
  Country: None (occurrence: None)
  Receive Date: 20070319
  Receipt Date: 20070308
  Transmission Date: 20070707
  Serious: Yes (Life-Threatening, Hospitalization, Other)
  Sender: FDA-Public Use
  Company Number: HQWYE518211SEP06

PATIENT
  Sex: Female
  Weight: 59 kg

DRUGS (9)
  1. MYLOTARG [Suspect]
     Indication: ACUTE MYELOID LEUKAEMIA RECURRENT
     Route: 041
     Dates: start: 20060808, end: 20060808
  2. HYDREA [Concomitant]
     Indication: ACUTE MYELOID LEUKAEMIA RECURRENT
     Dosage: NOT PROVIDED
     Route: 042
     Dates: start: 20060806
  3. SULPERAZON [Concomitant]
     Route: 041
     Dates: start: 20060730, end: 20060810
  4. HEPARIN [Concomitant]
     Indication: PROPHYLAXIS
     Route: 041
     Dates: start: 20060622, end: 20060906
  5. FUNGUARD [Concomitant]
     Route: 042
     Dates: start: 20060611, end: 20060810
  6. ZOVIRAX [Concomitant]
     Indication: PROPHYLAXIS
     Route: 048
     Dates: start: 20060616, end: 20060830
  7. URSO [Concomitant]
     Indication: PROPHYLAXIS
     Route: 048
     Dates: start: 20060619, end: 20060903
  8. DAUNORUBICIN HYDROCHLORIDE [Concomitant]
     Indication: ACUTE MYELOID LEUKAEMIA RECURRENT
     Dosage: NOT PROVIED
     Route: 042
     Dates: start: 20060806
  9. TOBRACIN [Concomitant]
     Route: 041
     Dates: start: 20060705, end: 20060709

REACTIONS (8)
  - ANAEMIA [None]
  - DRUG INEFFECTIVE [None]
  - LUNG INJURY [None]
  - MOUTH HAEMORRHAGE [None]
  - PLATELET COUNT DECREASED [None]
  - PSEUDOMONAL SEPSIS [None]
  - VENOOCCLUSIVE LIVER DISEASE [None]
  - WHITE BLOOD CELL COUNT DECREASED [None]
